FAERS Safety Report 7004044-5 (Version None)
Quarter: 2010Q3

REPORT INFORMATION
  Report Type: 
  Country: None (occurrence: None)
  Receive Date: 20100920
  Receipt Date: 20100108
  Transmission Date: 20110219
  Serious: Yes (Other)
  Sender: FDA-Public Use
  Company Number: US-WYE-H12911110

PATIENT
  Sex: Female

DRUGS (5)
  1. PRISTIQ [Suspect]
     Indication: DEPRESSION
     Route: 048
     Dates: start: 20090101, end: 20090101
  2. TYLENOL W/ CODEINE NO. 3 [Concomitant]
     Dosage: UNKNOWN
     Route: 065
  3. ALPRAZOLAM [Concomitant]
     Dosage: UNKNOWN
     Route: 065
  4. LYRICA [Concomitant]
     Dosage: UNKNOWN
     Route: 065
  5. METHOCARBAMOL [Concomitant]
     Dosage: UNKNOWN
     Route: 065

REACTIONS (1)
  - BLOOD PRESSURE INCREASED [None]
